FAERS Safety Report 17079880 (Version 1)
Quarter: 2019Q4

REPORT INFORMATION
  Report Type: Spontaneous
  Country: US (occurrence: US)
  Receive Date: 20191127
  Receipt Date: 20191127
  Transmission Date: 20200122
  Serious: No
  Sender: FDA-Public Use
  Company Number: US-ASTRAZENECA-2019SF55595

PATIENT
  Sex: Female

DRUGS (1)
  1. BYDUREON BCISE [Suspect]
     Active Substance: EXENATIDE
     Dosage: STARTING ONE WEEK AGO WITH INJECTION IN ABDOMEN, ON 28-OCT-2019 SECOND -INJECTION IN THIGH
     Route: 058
     Dates: start: 20191021

REACTIONS (2)
  - Wrong technique in product usage process [Unknown]
  - Pain in extremity [Unknown]
